FAERS Safety Report 7706769-2 (Version None)
Quarter: 2011Q3

REPORT INFORMATION
  Report Type: 
  Country: None (occurrence: None)
  Receive Date: 20110824
  Receipt Date: 20110816
  Transmission Date: 20111222
  Serious: Yes (Other)
  Sender: FDA-Public Use
  Company Number: US-B.I. PHARMACEUTICALS,INC./RIDGEFIELD-2011-BP-18089BP

PATIENT
  Age: 71 Year
  Sex: Male
  Weight: 116.12 kg

DRUGS (5)
  1. FUROSEMIDE [Concomitant]
     Dosage: 40 MG
     Dates: start: 20110516
  2. SPIRONOLACTONE [Concomitant]
     Dosage: 25 MG
     Dates: start: 20110516
  3. DIGOXIN [Concomitant]
     Dosage: 0.25 MG
     Dates: start: 20110516
  4. PRADAXA [Suspect]
     Indication: ATRIAL FIBRILLATION
     Dosage: 300 MG
     Route: 048
     Dates: start: 20110516, end: 20110621
  5. BYSTOLIC [Concomitant]
     Dosage: 5 MG
     Dates: start: 20110516

REACTIONS (1)
  - ATRIAL THROMBOSIS [None]
